FAERS Safety Report 6146049-2 (Version None)
Quarter: 2009Q2

REPORT INFORMATION
  Report Type: 
  Country: None (occurrence: None)
  Receive Date: 20090403
  Receipt Date: 20090330
  Transmission Date: 20091009
  Serious: Yes (Death)
  Sender: FDA-Public Use
  Company Number: 2009SP006895

PATIENT
  Age: 49 Year
  Sex: Male
  Weight: 68 kg

DRUGS (7)
  1. VIRAFERONPEG [Suspect]
     Indication: HEPATITIS C
     Dosage: 0.5 MCG/KG; QW; SC
     Route: 058
     Dates: start: 20081107
  2. DURAGESIC-100 [Concomitant]
  3. TRANXENE [Concomitant]
  4. SERESTA [Concomitant]
  5. TRANXENE [Concomitant]
  6. DAFALGAN [Concomitant]
  7. LOVENOX [Concomitant]

REACTIONS (1)
  - DEATH [None]
